FAERS Safety Report 5092895-6 (Version None)
Quarter: 2006Q3

REPORT INFORMATION
  Report Type: 
  Country: None (occurrence: None)
  Receive Date: 20060727
  Receipt Date: 20060413
  Transmission Date: 20061208
  Serious: Yes (Hospitalization)
  Sender: FDA-Public Use
  Company Number: FACT0600222

PATIENT
  Age: 37 Year
  Sex: Male
  Weight: 106.6 kg

DRUGS (4)
  1. FACTIVE [Suspect]
     Indication: RESPIRATORY TRACT INFECTION BACTERIAL
     Dosage: 320 MG, QD, ORAL
     Route: 048
     Dates: start: 20060327, end: 20060401
  2. NEXIUM [Suspect]
     Indication: GASTROOESOPHAGEAL REFLUX DISEASE
     Dosage: 40 MG, ORAL
     Route: 048
     Dates: start: 20060327
  3. DEXAMETHASONE TAB [Suspect]
     Indication: BRONCHITIS
     Dosage: 4 MG
     Dates: start: 20060327
  4. DEPO-MEDROL [Suspect]
     Indication: BRONCHITIS
     Dosage: 40 MG
     Dates: start: 20060327

REACTIONS (5)
  - DRUG INTERACTION [None]
  - PHARYNGOLARYNGEAL PAIN [None]
  - PYREXIA [None]
  - RASH GENERALISED [None]
  - SWELLING FACE [None]
